FAERS Safety Report 16048947 (Version 5)
Quarter: 2022Q1

REPORT INFORMATION
  Report Type: Spontaneous
  Country: US (occurrence: None)
  Receive Date: 20190307
  Receipt Date: 20220311
  Transmission Date: 20220424
  Serious: Yes (Death, Other)
  Sender: FDA-Public Use
  Company Number: 2018SF33744

PATIENT
  Age: 24840 Day
  Sex: Male
  Weight: 59 kg

DRUGS (54)
  1. PRILOSEC [Suspect]
     Active Substance: OMEPRAZOLE MAGNESIUM
     Indication: Ulcer
     Route: 048
     Dates: start: 20130101, end: 20170101
  2. PRILOSEC [Suspect]
     Active Substance: OMEPRAZOLE MAGNESIUM
     Indication: Gastrooesophageal reflux disease
     Route: 048
     Dates: start: 20130101, end: 20170101
  3. PRILOSEC [Suspect]
     Active Substance: OMEPRAZOLE MAGNESIUM
     Indication: Ulcer
     Dosage: 20 MG DAILY
     Route: 048
     Dates: start: 20141031
  4. PRILOSEC [Suspect]
     Active Substance: OMEPRAZOLE MAGNESIUM
     Indication: Gastrooesophageal reflux disease
     Dosage: 20 MG DAILY
     Route: 048
     Dates: start: 20141031
  5. PRILOSEC [Suspect]
     Active Substance: OMEPRAZOLE MAGNESIUM
     Indication: Ulcer
     Route: 048
     Dates: start: 20150220
  6. PRILOSEC [Suspect]
     Active Substance: OMEPRAZOLE MAGNESIUM
     Indication: Gastrooesophageal reflux disease
     Route: 048
     Dates: start: 20150220
  7. PRILOSEC [Suspect]
     Active Substance: OMEPRAZOLE MAGNESIUM
     Indication: Ulcer
     Route: 048
     Dates: start: 20141031, end: 20170518
  8. PRILOSEC [Suspect]
     Active Substance: OMEPRAZOLE MAGNESIUM
     Indication: Gastrooesophageal reflux disease
     Route: 048
     Dates: start: 20141031, end: 20170518
  9. PRILOSEC [Suspect]
     Active Substance: OMEPRAZOLE MAGNESIUM
     Indication: Ulcer
     Dosage: GENERIC
     Route: 065
     Dates: start: 20170120
  10. PRILOSEC [Suspect]
     Active Substance: OMEPRAZOLE MAGNESIUM
     Indication: Gastrooesophageal reflux disease
     Dosage: GENERIC
     Route: 065
     Dates: start: 20170120
  11. PRILOSEC [Suspect]
     Active Substance: OMEPRAZOLE MAGNESIUM
     Indication: Ulcer
     Dosage: GENERIC
     Route: 065
     Dates: start: 20170508
  12. PRILOSEC [Suspect]
     Active Substance: OMEPRAZOLE MAGNESIUM
     Indication: Gastrooesophageal reflux disease
     Dosage: GENERIC
     Route: 065
     Dates: start: 20170508
  13. PRILOSEC [Suspect]
     Active Substance: OMEPRAZOLE MAGNESIUM
     Indication: Ulcer
     Dosage: OMEPRAZOLE- 20 MG TWICE DAILY
     Route: 065
     Dates: start: 20140903
  14. PRILOSEC [Suspect]
     Active Substance: OMEPRAZOLE MAGNESIUM
     Indication: Gastrooesophageal reflux disease
     Dosage: OMEPRAZOLE- 20 MG TWICE DAILY
     Route: 065
     Dates: start: 20140903
  15. PRILOSEC [Suspect]
     Active Substance: OMEPRAZOLE MAGNESIUM
     Indication: Ulcer
     Dosage: OMEPRAZOLE- 20 MG TWICE DAILY
     Route: 065
     Dates: start: 20140903, end: 20170531
  16. PRILOSEC [Suspect]
     Active Substance: OMEPRAZOLE MAGNESIUM
     Indication: Gastrooesophageal reflux disease
     Dosage: OMEPRAZOLE- 20 MG TWICE DAILY
     Route: 065
     Dates: start: 20140903, end: 20170531
  17. PRILOSEC [Suspect]
     Active Substance: OMEPRAZOLE MAGNESIUM
     Indication: Ulcer
     Route: 048
     Dates: start: 20141031, end: 20170518
  18. PRILOSEC [Suspect]
     Active Substance: OMEPRAZOLE MAGNESIUM
     Indication: Gastrooesophageal reflux disease
     Route: 048
     Dates: start: 20141031, end: 20170518
  19. PRILOSEC OTC [Suspect]
     Active Substance: OMEPRAZOLE MAGNESIUM
     Indication: Gastrooesophageal reflux disease
     Route: 048
     Dates: start: 20130101, end: 20170101
  20. PRILOSEC OTC [Suspect]
     Active Substance: OMEPRAZOLE MAGNESIUM
     Indication: Gastrooesophageal reflux disease
     Route: 048
     Dates: start: 2013, end: 2017
  21. PROTONIX [Suspect]
     Active Substance: PANTOPRAZOLE SODIUM
     Indication: Ulcer
     Route: 065
     Dates: start: 20130101, end: 20170101
  22. PROTONIX [Suspect]
     Active Substance: PANTOPRAZOLE SODIUM
     Indication: Gastrooesophageal reflux disease
     Route: 065
     Dates: start: 20130101, end: 20170101
  23. PROTONIX [Suspect]
     Active Substance: PANTOPRAZOLE SODIUM
     Indication: Ulcer
     Dosage: GENERIC
     Route: 065
     Dates: start: 20140901, end: 20170110
  24. PROTONIX [Suspect]
     Active Substance: PANTOPRAZOLE SODIUM
     Indication: Gastrooesophageal reflux disease
     Dosage: GENERIC
     Route: 065
     Dates: start: 20140901, end: 20170110
  25. PROTONIX [Suspect]
     Active Substance: PANTOPRAZOLE SODIUM
     Indication: Ulcer
     Dosage: 40 MG GENERIC
     Route: 065
     Dates: start: 20140901, end: 20170110
  26. PROTONIX [Suspect]
     Active Substance: PANTOPRAZOLE SODIUM
     Indication: Gastrooesophageal reflux disease
     Dosage: 40 MG GENERIC
     Route: 065
     Dates: start: 20140901, end: 20170110
  27. PROTONIX [Suspect]
     Active Substance: PANTOPRAZOLE SODIUM
     Indication: Ulcer
     Route: 065
     Dates: start: 20140903
  28. PROTONIX [Suspect]
     Active Substance: PANTOPRAZOLE SODIUM
     Indication: Gastrooesophageal reflux disease
     Route: 065
     Dates: start: 20140903
  29. PROTONIX [Suspect]
     Active Substance: PANTOPRAZOLE SODIUM
     Indication: Ulcer
     Dosage: GENERIC
     Route: 065
     Dates: start: 20170110
  30. PROTONIX [Suspect]
     Active Substance: PANTOPRAZOLE SODIUM
     Indication: Gastrooesophageal reflux disease
     Dosage: GENERIC
     Route: 065
     Dates: start: 20170110
  31. PROTONIX [Suspect]
     Active Substance: PANTOPRAZOLE SODIUM
     Indication: Gastrooesophageal reflux disease
     Route: 065
     Dates: start: 20130101, end: 20170101
  32. PROTONIX [Suspect]
     Active Substance: PANTOPRAZOLE SODIUM
     Indication: Gastrooesophageal reflux disease
     Route: 065
     Dates: start: 20170523, end: 20170823
  33. PEPCID [Concomitant]
     Active Substance: FAMOTIDINE
  34. COGENTIN [Concomitant]
     Active Substance: BENZTROPINE MESYLATE
  35. HALDOL [Concomitant]
     Active Substance: HALOPERIDOL
  36. TOPROL XL [Concomitant]
     Active Substance: METOPROLOL SUCCINATE
  37. CLONOPIN [Concomitant]
     Active Substance: CLONAZEPAM
  38. RESTORIL [Concomitant]
     Active Substance: TEMAZEPAM
  39. LANTUS [Concomitant]
     Active Substance: INSULIN GLARGINE
  40. GLIPIZIDE [Concomitant]
     Active Substance: GLIPIZIDE
  41. CLONAZEPAM [Concomitant]
     Active Substance: CLONAZEPAM
  42. HALOPERIDOL [Concomitant]
     Active Substance: HALOPERIDOL
  43. HYDROCHLOROTHIAZIDE [Concomitant]
     Active Substance: HYDROCHLOROTHIAZIDE
  44. LURASIDONE [Concomitant]
     Active Substance: LURASIDONE
  45. METOPROLOL [Concomitant]
     Active Substance: METOPROLOL
  46. RISPERIDONE [Concomitant]
     Active Substance: RISPERIDONE
  47. TEMAZEPAM [Concomitant]
     Active Substance: TEMAZEPAM
  48. ALDACTONE [Concomitant]
     Active Substance: SPIRONOLACTONE
  49. BENZTROPINE [Concomitant]
     Active Substance: BENZTROPINE
  50. KLONOPIN [Concomitant]
     Active Substance: CLONAZEPAM
  51. HUMALOG [Concomitant]
     Active Substance: INSULIN LISPRO
  52. PROPRANOLOL [Concomitant]
     Active Substance: PROPRANOLOL HYDROCHLORIDE
  53. FUROSEMIDE [Concomitant]
     Active Substance: FUROSEMIDE
  54. LIPITOR [Concomitant]
     Active Substance: ATORVASTATIN CALCIUM

REACTIONS (7)
  - Multiple organ dysfunction syndrome [Fatal]
  - Pneumonia aspiration [Fatal]
  - Aspiration [Fatal]
  - Acute kidney injury [Not Recovered/Not Resolved]
  - Chronic kidney disease [Not Recovered/Not Resolved]
  - Renal injury [Unknown]
  - Renal failure [Unknown]

NARRATIVE: CASE EVENT DATE: 20140901
